FAERS Safety Report 6044797-6 (Version None)
Quarter: 2009Q1

REPORT INFORMATION
  Report Type: 
  Country: None (occurrence: None)
  Receive Date: 20090120
  Receipt Date: 20090116
  Transmission Date: 20090719
  Serious: Yes (Hospitalization)
  Sender: FDA-Public Use
  Company Number: DE-ABBOTT-08P-062-0459108-00

PATIENT
  Sex: Female
  Weight: 54 kg

DRUGS (10)
  1. HUMIRA [Suspect]
     Indication: CROHN'S DISEASE
     Route: 058
     Dates: start: 20070919
  2. HUMIRA [Suspect]
     Route: 058
     Dates: end: 20080201
  3. HUMIRA [Suspect]
     Dosage: 2X, 1 IN 1 WEEKS
     Route: 058
     Dates: start: 20080201, end: 20080301
  4. HUMIRA [Suspect]
     Route: 058
     Dates: start: 20080301, end: 20080401
  5. HUMIRA [Suspect]
     Dates: start: 20080401
  6. CORTISONE ACETATE TAB [Concomitant]
     Indication: CROHN'S DISEASE
     Route: 048
  7. NEXIUM [Concomitant]
     Indication: GASTRITIS
     Route: 048
  8. IDEOS [Concomitant]
     Indication: OSTEOPOROSIS PROPHYLAXIS
     Route: 048
  9. DIPYRONE INJ [Concomitant]
     Indication: ABDOMINAL PAIN
     Route: 048
  10. NOVALGIN [Concomitant]
     Indication: DRUG USE FOR UNKNOWN INDICATION
     Route: 048

REACTIONS (5)
  - ARTHRALGIA [None]
  - HEMIPARESIS [None]
  - NASOPHARYNGITIS [None]
  - OVARIAN CYST [None]
  - SPONDYLITIS [None]
